FAERS Safety Report 18390015 (Version 1)
Quarter: 2020Q4

REPORT INFORMATION
  Report Type: Spontaneous
  Country: None (occurrence: US)
  Receive Date: 20201015
  Receipt Date: 20201015
  Transmission Date: 20210114
  Serious: Yes (Life-Threatening)
  Sender: FDA-Public Use
  Company Number: US-I-HEALTH, INC.-2092836

PATIENT
  Age: 26 Year
  Sex: Female
  Weight: 57.73 kg

DRUGS (1)
  1. AZO YEAST PLUS (CANDIDA ALBICANS, WOOD CREOSOTE, SODIUM CHLORIDE, AND SULFUR) [Suspect]
     Active Substance: HOMEOPATHICS
     Indication: VULVOVAGINAL MYCOTIC INFECTION
     Route: 048
     Dates: start: 20200924, end: 20200924

REACTIONS (1)
  - Hypersensitivity [Recovering/Resolving]

NARRATIVE: CASE EVENT DATE: 20200924
